FAERS Safety Report 7511218-3 (Version None)
Quarter: 2011Q2

REPORT INFORMATION
  Report Type: 
  Country: None (occurrence: None)
  Receive Date: 20110531
  Receipt Date: 20110523
  Transmission Date: 20111010
  Serious: Yes (Death, Hospitalization)
  Sender: FDA-Public Use
  Company Number: JP-JNJFOC-20110206337

PATIENT
  Sex: Male
  Weight: 45 kg

DRUGS (34)
  1. DOXIL [Suspect]
     Dosage: CYCLE 3
     Route: 042
     Dates: start: 20080602, end: 20080602
  2. ZIAGEN [Concomitant]
     Indication: HIV INFECTION
     Route: 048
     Dates: start: 20080610, end: 20080829
  3. ALBUMIN (HUMAN) [Concomitant]
     Indication: KAPOSI'S SARCOMA AIDS RELATED
     Route: 042
     Dates: start: 20080416, end: 20081104
  4. RIFABUTIN [Concomitant]
     Indication: MYCOBACTERIUM AVIUM COMPLEX INFECTION
     Route: 048
     Dates: start: 20080610, end: 20080829
  5. CONCENTRATED RED CELLS [Concomitant]
     Indication: PROPHYLAXIS
     Route: 041
     Dates: start: 20080417, end: 20081114
  6. REMINARON [Concomitant]
     Route: 041
     Dates: start: 20080924, end: 20081110
  7. GRAN [Concomitant]
     Indication: WHITE BLOOD CELL COUNT DECREASED
     Route: 058
     Dates: start: 20080519, end: 20081026
  8. ATOVAQUONE [Concomitant]
     Indication: HIV INFECTION
     Route: 048
     Dates: start: 20080604, end: 20081119
  9. DOXIL [Suspect]
     Indication: KAPOSI'S SARCOMA AIDS RELATED
     Dosage: CYCLE 4
     Route: 042
     Dates: start: 20080623, end: 20080623
  10. SULFADOXINE PYRIMETHAMINE [Concomitant]
     Indication: MYCOBACTERIUM AVIUM COMPLEX INFECTION
     Route: 048
     Dates: start: 20080420, end: 20080603
  11. DOXIL [Suspect]
     Dosage: CYCLE 5
     Route: 042
     Dates: start: 20080821, end: 20080821
  12. DOXIL [Suspect]
     Dosage: CYCLE 7
     Route: 042
     Dates: start: 20081007, end: 20081007
  13. EPIVIR [Concomitant]
     Indication: HIV INFECTION
     Route: 048
     Dates: start: 20080610, end: 20080829
  14. EPIVIR [Concomitant]
     Route: 048
     Dates: start: 20081029, end: 20081119
  15. LOPINAVIR/RITONAVIR [Concomitant]
     Route: 048
     Dates: start: 20080610, end: 20080927
  16. SULFAMETHOXAZOLE [Concomitant]
     Indication: MYCOBACTERIUM AVIUM COMPLEX INFECTION
     Route: 048
     Dates: start: 20080419, end: 20080429
  17. DOXIL [Suspect]
     Dosage: CYCLE 6
     Route: 042
     Dates: start: 20080911, end: 20080911
  18. DOXIL [Suspect]
     Dosage: CYCLE 9
     Route: 042
     Dates: start: 20081112, end: 20081112
  19. DOXIL [Suspect]
     Dosage: CYCLE 1
     Route: 042
     Dates: start: 20080421, end: 20080421
  20. DOXIL [Suspect]
     Dosage: CYCLE 8
     Route: 042
     Dates: start: 20081021, end: 20081021
  21. EPZICOM [Concomitant]
     Indication: HIV INFECTION
     Route: 048
     Dates: start: 20080830, end: 20080927
  22. MEROPENEM HYDRATE [Concomitant]
     Route: 041
     Dates: start: 20080604, end: 20080614
  23. LEUCOVORIN CALCIUM [Concomitant]
     Indication: MYCOBACTERIUM AVIUM COMPLEX INFECTION
     Route: 048
     Dates: start: 20080419, end: 20080429
  24. LOPINAVIR/RITONAVIR [Concomitant]
     Indication: HIV INFECTION
     Route: 048
     Dates: start: 20081029, end: 20081119
  25. RALTEGRAVIR [Concomitant]
     Indication: HIV INFECTION
     Route: 048
     Dates: start: 20081029, end: 20081119
  26. GRAN [Concomitant]
     Indication: PROPHYLAXIS
     Route: 058
     Dates: start: 20080519, end: 20081026
  27. ETHAMBUTOL HYDROCHLORIDE [Concomitant]
     Indication: MYCOBACTERIUM AVIUM COMPLEX INFECTION
     Route: 048
     Dates: start: 20080503, end: 20080829
  28. CLINDAMYCIN [Concomitant]
     Indication: MYCOBACTERIUM AVIUM COMPLEX INFECTION
     Route: 048
     Dates: start: 20080430, end: 20080603
  29. AMBISOME [Concomitant]
     Route: 041
     Dates: start: 20081009, end: 20081119
  30. DOXIL [Suspect]
     Dosage: CYCLE 2
     Route: 042
     Dates: start: 20080512, end: 20080512
  31. CLARITHROMYCIN [Concomitant]
     Indication: MYCOBACTERIUM AVIUM COMPLEX INFECTION
     Route: 048
     Dates: start: 20080503, end: 20080829
  32. RIFABUTIN [Concomitant]
     Route: 048
     Dates: start: 20080503, end: 20080609
  33. SULFAMETHOXAZOLE AND TRIMETHOPRIM [Concomitant]
     Indication: MYCOBACTERIUM AVIUM COMPLEX INFECTION
     Route: 048
     Dates: start: 20080415, end: 20080418
  34. FUNGUARD [Concomitant]
     Route: 041
     Dates: start: 20080929, end: 20081119

REACTIONS (6)
  - PANCREATITIS [None]
  - IDIOPATHIC THROMBOCYTOPENIC PURPURA [None]
  - MULTI-ORGAN FAILURE [None]
  - DISSEMINATED INTRAVASCULAR COAGULATION [None]
  - PLEURAL EFFUSION [None]
  - CONVULSION [None]
